FAERS Safety Report 7405868-2 (Version None)
Quarter: 2011Q2

REPORT INFORMATION
  Report Type: 
  Country: None (occurrence: None)
  Receive Date: 20110406
  Receipt Date: 20110406
  Transmission Date: 20111010
  Serious: No
  Sender: FDA-Public Use
  Company Number: None

PATIENT
  Age: 50 Year
  Sex: Female

DRUGS (1)
  1. NITROFURANTOIN [Suspect]
     Dates: start: 20090926, end: 20091002

REACTIONS (3)
  - LIVER INJURY [None]
  - HEPATITIS ACUTE [None]
  - GALLBLADDER DISORDER [None]
